FAERS Safety Report 7031984-3 (Version None)
Quarter: 2010Q4

REPORT INFORMATION
  Report Type: 
  Country: None (occurrence: None)
  Receive Date: 20101001
  Receipt Date: 20100923
  Transmission Date: 20110411
  Serious: Yes (Hospitalization)
  Sender: FDA-Public Use
  Company Number: 019216

PATIENT
  Sex: Male

DRUGS (2)
  1. KEPPRA [Suspect]
     Indication: HEAD INJURY
     Dosage: (500 MG BID), (250 MG BID)
  2. PANADOL [Concomitant]

REACTIONS (3)
  - DRUG WITHDRAWAL SYNDROME [None]
  - HYPERSENSITIVITY [None]
  - INFLUENZA LIKE ILLNESS [None]
